FAERS Safety Report 25548435 (Version 1)
Quarter: 2025Q3

REPORT INFORMATION
  Report Type: Spontaneous
  Country: US (occurrence: None)
  Receive Date: 20250712
  Receipt Date: 20250712
  Transmission Date: 20251020
  Serious: Yes (Life-Threatening, Hospitalization)
  Sender: FDA-CTU
  Company Number: None

PATIENT
  Age: 70 Year
  Sex: Female

DRUGS (2)
  1. ALENDRONATE [Suspect]
     Active Substance: ALENDRONATE SODIUM
  2. TYLENOL [Concomitant]
     Active Substance: ACETAMINOPHEN

REACTIONS (8)
  - Haemoptysis [None]
  - Oesophageal haemorrhage [None]
  - Upper gastrointestinal haemorrhage [None]
  - Epigastric discomfort [None]
  - Product prescribing issue [None]
  - Wrong technique in product usage process [None]
  - Internal haemorrhage [None]
  - Emotional distress [None]

NARRATIVE: CASE EVENT DATE: 20250710
